FAERS Safety Report 6831581-6 (Version None)
Quarter: 2010Q3

REPORT INFORMATION
  Report Type: 
  Country: None (occurrence: None)
  Receive Date: 20100712
  Receipt Date: 20100629
  Transmission Date: 20110219
  Serious: Yes (Hospitalization)
  Sender: FDA-Public Use
  Company Number: PHHY2010IL41619

PATIENT
  Age: 43 Year
  Sex: Male

DRUGS (2)
  1. EXJADE [Suspect]
     Indication: CONGENITAL ANAEMIA
     Route: 048
  2. EXJADE [Suspect]
     Dosage: 1500 MG, UNK
     Route: 048
     Dates: start: 20100215

REACTIONS (5)
  - BENIGN INTRACRANIAL HYPERTENSION [None]
  - BLOOD CREATININE ABNORMAL [None]
  - CSF VOLUME INCREASED [None]
  - HEADACHE [None]
  - PYREXIA [None]
